FAERS Safety Report 6841204-8 (Version None)
Quarter: 2010Q3

REPORT INFORMATION
  Report Type: 
  Country: None (occurrence: None)
  Receive Date: 20100714
  Receipt Date: 20070629
  Transmission Date: 20110219
  Serious: No
  Sender: FDA-Public Use
  Company Number: US-PFIZER INC-2007054254

PATIENT
  Sex: Female
  Weight: 60 kg

DRUGS (4)
  1. CHANTIX [Suspect]
     Indication: SMOKING CESSATION THERAPY
     Route: 048
     Dates: start: 20070622
  2. ABILIFY [Concomitant]
     Dates: start: 20070501
  3. LEXAPRO [Concomitant]
     Dates: start: 20070501
  4. LORAZEPAM [Concomitant]
     Dates: start: 20070101

REACTIONS (1)
  - INSOMNIA [None]
